FAERS Safety Report 9882208 (Version 1)
Quarter: 2014Q1

REPORT INFORMATION
  Report Type: Spontaneous
  Country: US (occurrence: US)
  Receive Date: 20140207
  Receipt Date: 20140207
  Transmission Date: 20141002
  Serious: Yes (Death, Hospitalization)
  Sender: FDA-Public Use
  Company Number: PHHY2014US011755

PATIENT
  Age: 64 Year
  Sex: Male

DRUGS (1)
  1. AMANTADINE [Suspect]
     Dosage: 300 MG, DAILY
     Route: 048

REACTIONS (20)
  - Cardiac arrest [Fatal]
  - Pulseless electrical activity [Fatal]
  - Metabolic acidosis [Unknown]
  - Myoclonus [Unknown]
  - Hallucination, visual [Unknown]
  - Gait disturbance [Unknown]
  - Disturbance in attention [Unknown]
  - Memory impairment [Unknown]
  - Confusional state [Unknown]
  - Hypotension [Unknown]
  - Blood lactic acid increased [Unknown]
  - Acute respiratory distress syndrome [Unknown]
  - Bronchopneumonia [Unknown]
  - Diffuse alveolar damage [Unknown]
  - Hypoxia [Unknown]
  - Pulmonary congestion [Unknown]
  - Lung infiltration [Unknown]
  - Pulmonary oedema [Unknown]
  - Toxicity to various agents [Unknown]
  - Drug level increased [Unknown]
